FAERS Safety Report 5489773-7 (Version None)
Quarter: 2007Q4

REPORT INFORMATION
  Report Type: 
  Country: None (occurrence: None)
  Receive Date: 20071018
  Receipt Date: 20071010
  Transmission Date: 20080405
  Serious: Yes (Hospitalization)
  Sender: FDA-Public Use
  Company Number: IT-BAYER-200715262GDS

PATIENT
  Age: 63 Year
  Sex: Male
  Weight: 88 kg

DRUGS (19)
  1. SORAFENIB [Suspect]
     Indication: NON-SMALL CELL LUNG CANCER
     Dosage: TOTAL DAILY DOSE: 800 MG
     Route: 048
     Dates: start: 20070719, end: 20071003
  2. GEMCITABINE HCL [Suspect]
     Indication: NON-SMALL CELL LUNG CANCER
     Route: 042
     Dates: start: 20070719, end: 20070719
  3. CISPLATIN [Suspect]
     Indication: NON-SMALL CELL LUNG CANCER
     Route: 042
     Dates: start: 20070719, end: 20070719
  4. NAVOBAN [Concomitant]
     Indication: PROPHYLAXIS OF NAUSEA AND VOMITING
     Route: 048
     Dates: start: 20070818, end: 20070820
  5. NAVOBAN [Concomitant]
     Route: 048
     Dates: start: 20070721, end: 20070723
  6. PLASIL [Concomitant]
     Indication: PROPHYLAXIS OF NAUSEA AND VOMITING
     Route: 048
     Dates: start: 20070721, end: 20070724
  7. PLASIL [Concomitant]
     Route: 048
     Dates: start: 20070818, end: 20070821
  8. CONTRAMAL [Concomitant]
     Indication: PAIN PROPHYLAXIS
     Route: 065
     Dates: end: 20070726
  9. MS CONTIN [Concomitant]
     Indication: PAIN PROPHYLAXIS
     Dates: start: 20070726
  10. PURSENNID [Concomitant]
     Indication: CONSTIPATION
     Route: 048
     Dates: start: 20070726, end: 20070823
  11. SELEPARINA [Concomitant]
     Indication: THROMBOSIS PROPHYLAXIS
     Route: 065
     Dates: start: 20070709
  12. NEXIUM [Concomitant]
     Indication: PROPHYLAXIS
     Route: 065
     Dates: start: 20070726
  13. IBUPROFEN [Concomitant]
     Indication: PAIN PROPHYLAXIS
     Route: 065
     Dates: start: 20070726
  14. LOPERAMIDE HCL [Concomitant]
     Indication: DIARRHOEA
     Route: 065
     Dates: start: 20070730, end: 20070801
  15. MYCOSTATIN [Concomitant]
     Indication: ORAL FUNGAL INFECTION
     Route: 065
     Dates: start: 20070730, end: 20070814
  16. CORSODYL [Concomitant]
     Indication: ORAL FUNGAL INFECTION
     Route: 048
     Dates: start: 20070818
  17. EFFEXOR [Concomitant]
     Indication: ANXIETY
     Route: 065
     Dates: start: 20070818
  18. METFORMINA [Concomitant]
     Indication: DIABETES MELLITUS
     Route: 065
     Dates: start: 20050101
  19. CRESTOR [Concomitant]
     Indication: HYPERCHOLESTEROLAEMIA
     Route: 065
     Dates: start: 20050701

REACTIONS (3)
  - HYPOCALCAEMIA [None]
  - HYPOKALAEMIA [None]
  - HYPONATRAEMIA [None]
